FAERS Safety Report 14634306 (Version 1)
Quarter: 2018Q1

REPORT INFORMATION
  Report Type: Spontaneous
  Country: IT (occurrence: IT)
  Receive Date: 20180314
  Receipt Date: 20180314
  Transmission Date: 20180509
  Serious: Yes (Hospitalization)
  Sender: FDA-Public Use
  Company Number: IT-CIPLA LTD.-2018IT10704

PATIENT

DRUGS (1)
  1. RISPERIDONE. [Suspect]
     Active Substance: RISPERIDONE
     Indication: BIPOLAR DISORDER
     Dosage: UNK
     Route: 065
     Dates: start: 20101101, end: 20120419

REACTIONS (6)
  - Dermatitis atopic [Unknown]
  - Seizure [Unknown]
  - Respiratory arrest [Unknown]
  - Cough [Unknown]
  - Posterior reversible encephalopathy syndrome [Unknown]
  - Headache [Unknown]

NARRATIVE: CASE EVENT DATE: 20120419
